FAERS Safety Report 10394326 (Version 1)
Quarter: 2014Q3

REPORT INFORMATION
  Report Type: Spontaneous
  Country: BR (occurrence: BR)
  Receive Date: 20140819
  Receipt Date: 20140819
  Transmission Date: 20150326
  Serious: Yes (Other)
  Sender: FDA-Public Use
  Company Number: BR-DSJP-DSJ-2014-118438

PATIENT

DRUGS (3)
  1. BENICAR [Suspect]
     Active Substance: OLMESARTAN MEDOXOMIL
     Indication: HYPERTENSION
     Dosage: 20 MG, QD
     Route: 048
  2. BENICAR [Suspect]
     Active Substance: OLMESARTAN MEDOXOMIL
     Dosage: 20 MG, QD
     Route: 048
  3. BENICAR [Suspect]
     Active Substance: OLMESARTAN MEDOXOMIL
     Dosage: 40 MG, QD
     Route: 048

REACTIONS (12)
  - Tonsillitis [Not Recovered/Not Resolved]
  - Headache [Unknown]
  - Memory impairment [Recovered/Resolved]
  - Drug dose omission [None]
  - Hypotension [Unknown]
  - Sleep disorder [None]
  - Blood pressure increased [Recovered/Resolved]
  - Malaise [Unknown]
  - Drug administration error [Unknown]
  - Nasal septum deviation [Not Recovered/Not Resolved]
  - Hot flush [Unknown]
  - Treatment noncompliance [None]

NARRATIVE: CASE EVENT DATE: 201401
